FAERS Safety Report 4898351-X (Version None)
Quarter: 2006Q1

REPORT INFORMATION
  Report Type: 
  Country: None (occurrence: None)
  Receive Date: 20060131
  Receipt Date: 20060131
  Transmission Date: 20060701
  Serious: Yes (Hospitalization)
  Sender: FDA-Public Use
  Company Number: None

PATIENT
  Age: 59 Year
  Sex: Male
  Weight: 79.3795 kg

DRUGS (1)
  1. CEPHALEXIN [Suspect]
     Indication: CATHETER RELATED INFECTION
     Dosage: 500 MG Q 12 H PO
     Route: 048
     Dates: start: 20051118, end: 20051130

REACTIONS (8)
  - BLOOD PRESSURE SYSTOLIC DECREASED [None]
  - CHILLS [None]
  - DIZZINESS [None]
  - LEUKOCYTOSIS [None]
  - PYREXIA [None]
  - SYNCOPE [None]
  - TREMOR [None]
  - URTICARIA [None]
